FAERS Safety Report 6206074-X (Version None)
Quarter: 2009Q2

REPORT INFORMATION
  Report Type: 
  Country: None (occurrence: None)
  Receive Date: 20090528
  Receipt Date: 20090522
  Transmission Date: 20091009
  Serious: Yes (Other)
  Sender: FDA-Public Use
  Company Number: JP-BRISTOL-MYERS SQUIBB COMPANY-14494934

PATIENT
  Age: 54 Year
  Sex: Female

DRUGS (4)
  1. BARACLUDE [Suspect]
     Indication: HEPATITIS B
     Route: 048
     Dates: start: 20070903
  2. TAXOL [Suspect]
     Indication: BREAST CANCER
     Route: 041
     Dates: start: 20071225, end: 20080228
  3. HERCEPTIN [Suspect]
     Dosage: FRM 25DEC07-28FEB08-95MG,1 IN 1 WK,66 DAYS. FRM 6MAR08-11DEC08-285MG,1 IN 3 WK,281 DAYS.
     Route: 041
     Dates: start: 20080306, end: 20081211
  4. ZANTAC [Suspect]
     Route: 041
     Dates: start: 20071225, end: 20080228

REACTIONS (1)
  - PHOTOSENSITIVITY REACTION [None]
